FAERS Safety Report 9219536 (Version 1)
Quarter: 2013Q2

REPORT INFORMATION
  Report Type: Spontaneous
  Country: US (occurrence: US)
  Receive Date: 20130409
  Receipt Date: 20130409
  Transmission Date: 20140414
  Serious: No
  Sender: FDA-Public Use
  Company Number: US-PFIZER INC-2013107101

PATIENT
  Age: 9 Decade
  Sex: Male

DRUGS (1)
  1. VIAGRA [Suspect]
     Dosage: UNK,TWO TO THREE TIMES A WEEK

REACTIONS (1)
  - Carpal tunnel syndrome [Unknown]
